FAERS Safety Report 20005306 (Version 1)
Quarter: 2021Q4

REPORT INFORMATION
  Report Type: 
  Country: None (occurrence: None)
  Receive Date: 20211027
  Receipt Date: 20211027
  Transmission Date: 20220303
  Serious: No
  Sender: FDA-Public Use
  Company Number: None

PATIENT
  Age: 76 Year
  Sex: Female

DRUGS (1)
  1. COSOPT PF [Interacting]
     Active Substance: DORZOLAMIDE HYDROCHLORIDE\TIMOLOL MALEATE

REACTIONS (9)
  - Sinus congestion [None]
  - Lacrimation increased [Recovered/Resolved]
  - Dental dysaesthesia [Recovered/Resolved]
  - Sinusitis [Recovered/Resolved]
  - Ocular vascular disorder [Recovered/Resolved]
  - Drug ineffective [None]
  - Tinnitus [Recovered/Resolved]
  - Head discomfort [Recovered/Resolved]
  - Drug interaction [Recovered/Resolved]
